FAERS Safety Report 10527892 (Version 2)
Quarter: 2014Q4

REPORT INFORMATION
  Report Type: Spontaneous
  Country: US (occurrence: US)
  Receive Date: 20141020
  Receipt Date: 20141029
  Transmission Date: 20150528
  Serious: Yes (Other)
  Sender: FDA-Public Use
  Company Number: US-TEVA-515295USA

PATIENT
  Sex: Male

DRUGS (1)
  1. COPAXONE [Suspect]
     Active Substance: GLATIRAMER ACETATE
     Indication: MULTIPLE SCLEROSIS
     Dates: start: 20140825

REACTIONS (9)
  - Depression [Unknown]
  - Stress [Unknown]
  - Self-injurious ideation [Unknown]
  - Gait disturbance [Unknown]
  - Drug ineffective [Unknown]
  - Emotional disorder [Unknown]
  - Confusional state [Unknown]
  - Tremor [Unknown]
  - Sleep disorder [Unknown]
